FAERS Safety Report 17685740 (Version 2)
Quarter: 2020Q2

REPORT INFORMATION
  Report Type: Spontaneous
  Country: CN (occurrence: CN)
  Receive Date: 20200420
  Receipt Date: 20200423
  Transmission Date: 20200714
  Serious: No
  Sender: FDA-Public Use
  Company Number: CN-ASTRAZENECA-2020SE52664

PATIENT
  Sex: Female

DRUGS (2)
  1. RHINOCORT AQUA [Suspect]
     Active Substance: BUDESONIDE
     Indication: NASAL OBSTRUCTION
     Route: 045
     Dates: start: 20200409
  2. RHINOCORT AQUA [Suspect]
     Active Substance: BUDESONIDE
     Indication: NASAL OBSTRUCTION
     Route: 045

REACTIONS (2)
  - Nasal obstruction [Unknown]
  - Hypoacusis [Unknown]
